FAERS Safety Report 13026122 (Version 2)
Quarter: 2017Q1

REPORT INFORMATION
  Report Type: Spontaneous
  Country: US (occurrence: US)
  Receive Date: 20161214
  Receipt Date: 20170221
  Transmission Date: 20170428
  Serious: No
  Sender: FDA-Public Use
  Company Number: US-JNJFOC-20161130505

PATIENT
  Sex: Male

DRUGS (1)
  1. INVEGA SUSTENNA [Suspect]
     Active Substance: PALIPERIDONE PALMITATE
     Indication: SCHIZOPHRENIA
     Route: 030

REACTIONS (7)
  - Off label use [Unknown]
  - Medication error [Unknown]
  - Inappropriate schedule of drug administration [Unknown]
  - Anxiety [Unknown]
  - Self-medication [Unknown]
  - Incorrect route of drug administration [Unknown]
  - Extra dose administered [Unknown]
